FAERS Safety Report 10930534 (Version 4)
Quarter: 2016Q4

REPORT INFORMATION
  Report Type: Spontaneous
  Country: US (occurrence: US)
  Receive Date: 20150319
  Receipt Date: 20161006
  Transmission Date: 20170206
  Serious: Yes (Hospitalization, Other)
  Sender: FDA-Public Use
  Company Number: US-GLAXOSMITHKLINE-US2015033150

PATIENT
  Age: 62 Year
  Sex: Male

DRUGS (17)
  1. SPIRONOLACTONE. [Concomitant]
     Active Substance: SPIRONOLACTONE
  2. NAPROXEN. [Concomitant]
     Active Substance: NAPROXEN
  3. LAMICTAL [Suspect]
     Active Substance: LAMOTRIGINE
     Indication: DEPRESSION
     Dosage: UNK, BID
     Route: 048
     Dates: start: 2004
  4. LAMICTAL [Suspect]
     Active Substance: LAMOTRIGINE
     Indication: AFFECTIVE DISORDER
  5. METFORMIN [Concomitant]
     Active Substance: METFORMIN HYDROCHLORIDE
  6. ACCUPRIL [Concomitant]
     Active Substance: QUINAPRIL HYDROCHLORIDE
  7. DEXILANT [Concomitant]
     Active Substance: DEXLANSOPRAZOLE
  8. LAMICTAL [Suspect]
     Active Substance: LAMOTRIGINE
     Indication: BIPOLAR DISORDER
     Dosage: 400 MG, QD
     Route: 048
     Dates: start: 2007
  9. CYMBALTA [Concomitant]
     Active Substance: DULOXETINE HYDROCHLORIDE
  10. GLIMEPIRIDE. [Concomitant]
     Active Substance: GLIMEPIRIDE
  11. PRAVASTATIN. [Concomitant]
     Active Substance: PRAVASTATIN
  12. ALLEGRA [Concomitant]
     Active Substance: FEXOFENADINE HYDROCHLORIDE
     Dosage: UNK, PRN
  13. NORVASC [Concomitant]
     Active Substance: AMLODIPINE BESYLATE
  14. CIALIS [Concomitant]
     Active Substance: TADALAFIL
  15. GABAPENTIN. [Concomitant]
     Active Substance: GABAPENTIN
  16. PLAVIX [Concomitant]
     Active Substance: CLOPIDOGREL BISULFATE
  17. GLYSENNID [Concomitant]
     Active Substance: SENNA LEAF

REACTIONS (11)
  - Oropharyngeal pain [Recovering/Resolving]
  - Joint injury [Recovered/Resolved]
  - Multiple allergies [Recovered/Resolved]
  - Road traffic accident [Recovering/Resolving]
  - Calcinosis [Not Recovered/Not Resolved]
  - Productive cough [Recovered/Resolved]
  - Arthralgia [Recovered/Resolved]
  - Rhinorrhoea [Recovered/Resolved]
  - Hip arthroplasty [Recovering/Resolving]
  - Cartilage injury [Recovering/Resolving]
  - Dysphonia [Not Recovered/Not Resolved]

NARRATIVE: CASE EVENT DATE: 20150109
